APPROVED DRUG PRODUCT: SEROMYCIN
Active Ingredient: CYCLOSERINE
Strength: 250MG
Dosage Form/Route: CAPSULE;ORAL
Application: A060593 | Product #001
Applicant: SANALUZ LLC
Approved: Approved Prior to Jan 1, 1982 | RLD: No | RS: Yes | Type: RX